FAERS Safety Report 4909468-5 (Version None)
Quarter: 2006Q1

REPORT INFORMATION
  Report Type: 
  Country: None (occurrence: None)
  Receive Date: 20060213
  Receipt Date: 20050718
  Transmission Date: 20060701
  Serious: Yes (Hospitalization)
  Sender: FDA-Public Use
  Company Number: US-MERCK-0507USA02850

PATIENT
  Age: 54 Year
  Sex: Female
  Weight: 89 kg

DRUGS (8)
  1. VIOXX [Suspect]
     Indication: ARTHRALGIA
     Route: 048
     Dates: start: 20010510
  2. VIOXX [Suspect]
     Route: 048
     Dates: end: 20040227
  3. IBUPROFEN [Concomitant]
     Route: 065
  4. TOPROL-XL [Concomitant]
     Route: 065
  5. PRINIVIL [Concomitant]
     Route: 065
  6. NORVASC [Concomitant]
     Route: 065
  7. ALLEGRA [Concomitant]
     Route: 065
  8. SYNTHROID [Concomitant]
     Route: 065

REACTIONS (4)
  - ARTHROPATHY [None]
  - INJURY [None]
  - KNEE ARTHROPLASTY [None]
  - TRANSIENT ISCHAEMIC ATTACK [None]
